FAERS Safety Report 6939507-1 (Version None)
Quarter: 2010Q3

REPORT INFORMATION
  Report Type: 
  Country: None (occurrence: None)
  Receive Date: 20100819
  Receipt Date: 20100803
  Transmission Date: 20110219
  Serious: Yes (Other)
  Sender: FDA-Public Use
  Company Number: 1000015297

PATIENT
  Age: 47 Year
  Sex: Male

DRUGS (5)
  1. ESCITALOPRAM [Suspect]
     Indication: ANXIETY
     Dosage: SEE IMAGE
     Route: 048
  2. ESCITALOPRAM [Suspect]
     Indication: DEPRESSION
     Dosage: SEE IMAGE
     Route: 048
  3. ESCITALOPRAM [Suspect]
     Indication: ANXIETY
     Dosage: SEE IMAGE
     Route: 048
  4. ESCITALOPRAM [Suspect]
     Indication: DEPRESSION
     Dosage: SEE IMAGE
     Route: 048
  5. CLONAZEPAM [Concomitant]

REACTIONS (8)
  - ANXIETY [None]
  - IMPATIENCE [None]
  - INSOMNIA [None]
  - IRRITABILITY [None]
  - NEGATIVE THOUGHTS [None]
  - PANIC ATTACK [None]
  - RESTLESSNESS [None]
  - TACHYPHRENIA [None]
